FAERS Safety Report 25477553 (Version 1)
Quarter: 2025Q2

REPORT INFORMATION
  Report Type: Report from Study
  Country: US (occurrence: US)
  Receive Date: 20250625
  Receipt Date: 20250625
  Transmission Date: 20250716
  Serious: Yes (Other)
  Sender: ACADIA PHARMACEUTICALS
  Company Number: US-ACADIA PHARMACEUTICALS INC.-ACA-2025-PIM-007452

PATIENT
  Age: 74 Year
  Sex: Male

DRUGS (25)
  1. NUPLAZID [Suspect]
     Active Substance: PIMAVANSERIN TARTRATE
     Indication: Parkinson^s disease
     Dosage: 34 MILLIGRAM, QD
     Route: 048
     Dates: start: 20240508
  2. MELOXICAM [Concomitant]
     Active Substance: MELOXICAM
  3. ASPIRIN [Concomitant]
     Active Substance: ASPIRIN
  4. LIPITOR [Concomitant]
     Active Substance: ATORVASTATIN CALCIUM
  5. SOLIFENACIN [Concomitant]
     Active Substance: SOLIFENACIN
  6. CARBIDOPA\LEVODOPA [Concomitant]
     Active Substance: CARBIDOPA\LEVODOPA
  7. FARXIGA [Concomitant]
     Active Substance: DAPAGLIFLOZIN PROPANEDIOL
  8. OMEGA 3,6+9 [Concomitant]
  9. VITAMIN B12 [Concomitant]
     Active Substance: CYANOCOBALAMIN
  10. GABAPENTIN [Concomitant]
     Active Substance: GABAPENTIN
  11. ONE A DAY [ASCORBIC ACID;CYANOCOBALAMIN;ERGOCALCIFEROL;NICOTINAMIDE;PY [Concomitant]
  12. COUMADIN [Concomitant]
     Active Substance: WARFARIN SODIUM
  13. HERBALS\TURMERIC [Concomitant]
     Active Substance: HERBALS\TURMERIC
  14. VENLAFAXINE [Concomitant]
     Active Substance: VENLAFAXINE HYDROCHLORIDE
  15. DONEPEZIL HYDROCHLORIDE [Concomitant]
     Active Substance: DONEPEZIL HYDROCHLORIDE
  16. VITAMIN E [Concomitant]
     Active Substance: .ALPHA.-TOCOPHEROL
  17. ALLOPURINOL [Concomitant]
     Active Substance: ALLOPURINOL
  18. OMEPRAZOLE [Concomitant]
     Active Substance: OMEPRAZOLE
  19. MEMANTINE [Concomitant]
     Active Substance: MEMANTINE
  20. SEROQUEL [Concomitant]
     Active Substance: QUETIAPINE FUMARATE
  21. OLANZAPINE [Concomitant]
     Active Substance: OLANZAPINE
  22. NORVASC [Concomitant]
     Active Substance: AMLODIPINE BESYLATE
  23. LOSARTAN [Concomitant]
     Active Substance: LOSARTAN
  24. FISH OIL [Concomitant]
     Active Substance: FISH OIL
  25. ATROPINE [Concomitant]
     Active Substance: ATROPINE

REACTIONS (2)
  - Urinary retention [Unknown]
  - Constipation [Unknown]

NARRATIVE: CASE EVENT DATE: 20250609
